FAERS Safety Report 6822560-3 (Version None)
Quarter: 2010Q3

REPORT INFORMATION
  Report Type: 
  Country: None (occurrence: None)
  Receive Date: 20100702
  Receipt Date: 20100618
  Transmission Date: 20110219
  Serious: Yes (Hospitalization)
  Sender: FDA-Public Use
  Company Number: A-NJ2010-35168

PATIENT
  Age: 48 Year
  Sex: Female

DRUGS (12)
  1. TRACLEER [Suspect]
     Indication: PULMONARY ARTERIAL HYPERTENSION
     Dosage: 125 MG, BID, ORAL
     Route: 048
     Dates: start: 20030401
  2. FLOLAN [Suspect]
  3. CALCIUM CHANNEL BLOCKERS [Concomitant]
  4. PROCRIT [Concomitant]
  5. LASIX [Concomitant]
  6. POTASSIUM (POTASSIUM) [Concomitant]
  7. ALDACTONE [Concomitant]
  8. SEROQUEL [Concomitant]
  9. LEXAPRO [Concomitant]
  10. FERROUS SULFATE TAB [Concomitant]
  11. TOPROL-XL [Concomitant]
  12. DIGOXIN [Concomitant]

REACTIONS (8)
  - ABDOMINAL DISTENSION [None]
  - CONDITION AGGRAVATED [None]
  - EPISTAXIS [None]
  - HAEMATOCRIT DECREASED [None]
  - OEDEMA [None]
  - OEDEMA PERIPHERAL [None]
  - PACKED RED BLOOD CELL TRANSFUSION [None]
  - PLATELET COUNT DECREASED [None]
